FAERS Safety Report 4506521-5 (Version None)
Quarter: 2004Q4

REPORT INFORMATION
  Report Type: 
  Country: None (occurrence: None)
  Receive Date: 20041122
  Receipt Date: 20041103
  Transmission Date: 20050328
  Serious: Yes (Death, Life-Threatening, Hospitalization)
  Sender: FDA-Public Use
  Company Number: PHBS2004IT14871

PATIENT
  Age: 79 Year
  Sex: Male

DRUGS (3)
  1. TOLEP [Suspect]
     Indication: PARTIAL SEIZURES
     Dosage: 600 MG/D
     Route: 048
     Dates: start: 20041020, end: 20041025
  2. GARDENALE [Suspect]
     Indication: PARTIAL SEIZURES
     Dosage: 100 MG/D
     Route: 048
     Dates: start: 20041015, end: 20041026
  3. TETANUS GAMMA GLOBULIN [Suspect]
     Indication: PROPHYLAXIS
     Dosage: 500 UI/ML/ONCE/SINGLE
     Route: 030
     Dates: start: 20041021, end: 20041021

REACTIONS (1)
  - TOXIC EPIDERMAL NECROLYSIS [None]
